FAERS Safety Report 18567104 (Version 1)
Quarter: 2020Q4

REPORT INFORMATION
  Report Type: Report from Study
  Country: GB (occurrence: GB)
  Receive Date: 20201201
  Receipt Date: 20201201
  Transmission Date: 20210114
  Serious: Yes (Other)
  Sender: FDA-Public Use
  Company Number: GB-PURDUE-USA-2020-0167283

PATIENT
  Age: 79 Year
  Sex: Female

DRUGS (4)
  1. MORPHINE SULFATE (SIMILAR TO NDA 19-516) [Suspect]
     Active Substance: MORPHINE SULFATE
     Indication: PRODUCT USED FOR UNKNOWN INDICATION
     Dosage: UNK
     Route: 065
  2. ETANERCEPT [Suspect]
     Active Substance: ETANERCEPT
     Indication: RHEUMATOID ARTHRITIS
     Dosage: 50 MG, WEEKLY
     Route: 058
     Dates: start: 20191227
  3. ETANERCEPT [Suspect]
     Active Substance: ETANERCEPT
     Dosage: 50 MG, WEEKLY
     Route: 058
     Dates: start: 20191220
  4. MORPHINE SULFATE (SIMILAR TO NDA 19-516) [Suspect]
     Active Substance: MORPHINE SULFATE
     Dosage: UNK
     Route: 065

REACTIONS (9)
  - Herpes zoster [Unknown]
  - Sleep disorder [Unknown]
  - Walking aid user [Unknown]
  - Disorientation [Unknown]
  - Mobility decreased [Unknown]
  - Rheumatoid arthritis [Unknown]
  - Malaise [Unknown]
  - Therapeutic response shortened [Unknown]
  - Cataract [Unknown]
